FAERS Safety Report 17769776 (Version 8)
Quarter: 2023Q1

REPORT INFORMATION
  Report Type: Spontaneous
  Country: US (occurrence: US)
  Receive Date: 20200512
  Receipt Date: 20230215
  Transmission Date: 20230418
  Serious: Yes (Other)
  Sender: FDA-Public Use
  Company Number: US-PFIZER INC-2020188452

PATIENT
  Age: 60 Year
  Sex: Female

DRUGS (27)
  1. XELJANZ XR [Suspect]
     Active Substance: TOFACITINIB CITRATE
     Indication: Rheumatoid arthritis
     Dosage: 11 MG, 1X/DAY
     Route: 048
     Dates: start: 20190105, end: 2019
  2. XELJANZ XR [Suspect]
     Active Substance: TOFACITINIB CITRATE
     Dosage: 11 MG, 1X/DAY
     Route: 048
     Dates: start: 201902, end: 2019
  3. XELJANZ XR [Suspect]
     Active Substance: TOFACITINIB CITRATE
     Dosage: 11 MG, 1X/DAY
     Route: 048
     Dates: start: 20190501, end: 202212
  4. PREDNISONE [Concomitant]
     Active Substance: PREDNISONE
     Dosage: UNK
  5. ZINC [Concomitant]
     Active Substance: ZINC
     Dosage: UNK
  6. LEVOTHYROXINE [Concomitant]
     Active Substance: LEVOTHYROXINE
     Dosage: UNK
  7. VITAMIN C [Concomitant]
     Active Substance: ASCORBIC ACID
     Dosage: UNK
  8. FISH OIL [Concomitant]
     Active Substance: FISH OIL
     Dosage: UNK
  9. DIETARY SUPPLEMENT [Concomitant]
     Active Substance: DIETARY SUPPLEMENT
     Dosage: UNK
  10. IBUPROFEN [Concomitant]
     Active Substance: IBUPROFEN
     Dosage: UNK
  11. CALCIUM\CHOLECALCIFEROL [Concomitant]
     Active Substance: CALCIUM\CHOLECALCIFEROL
     Dosage: UNK
  12. COENZYME Q10 [Concomitant]
     Active Substance: DIETARY SUPPLEMENT\UBIDECARENONE
     Dosage: UNK
  13. AIRBORNE [Concomitant]
     Active Substance: HERBALS\MINERALS\VITAMINS
     Dosage: UNK
  14. TURMERIC [CURCUMA LONGA ROOT] [Concomitant]
     Dosage: UNK
  15. TYLENOL [Concomitant]
     Active Substance: ACETAMINOPHEN
     Dosage: UNK
  16. INDIAN FRANKINCENSE [Concomitant]
     Active Substance: INDIAN FRANKINCENSE
     Dosage: UNK
  17. CURCUMIN [Concomitant]
     Active Substance: CURCUMIN
     Dosage: UNK
  18. FOSAMAX [Concomitant]
     Active Substance: ALENDRONATE SODIUM
     Dosage: UNK
  19. AZO BLADDER CONTROL WITH GO LESS [Concomitant]
     Dosage: UNK
  20. LIPITOR [Concomitant]
     Active Substance: ATORVASTATIN CALCIUM
     Dosage: UNK
  21. ONDANSETRON [Concomitant]
     Active Substance: ONDANSETRON
     Dosage: UNK
  22. BENZONATATE [Concomitant]
     Active Substance: BENZONATATE
     Dosage: UNK
  23. VITAMIN B12 [Concomitant]
     Active Substance: CYANOCOBALAMIN
     Dosage: UNK
  24. HYDROCHLOROTHIAZIDE [Concomitant]
     Active Substance: HYDROCHLOROTHIAZIDE
     Dosage: UNK
  25. VITAMIN D3 [Concomitant]
     Active Substance: CHOLECALCIFEROL
     Dosage: UNK
  26. MAGNESIUM [Concomitant]
     Active Substance: MAGNESIUM
     Dosage: UNK
  27. PROAIR HFA [Concomitant]
     Active Substance: ALBUTEROL SULFATE
     Dosage: UNK

REACTIONS (24)
  - COVID-19 [Unknown]
  - Pneumonia [Unknown]
  - Tibia fracture [Recovering/Resolving]
  - Therapeutic product effect delayed [Unknown]
  - Intentional product misuse [Unknown]
  - Product dose omission in error [Unknown]
  - Arthralgia [Unknown]
  - Cough [Recovered/Resolved]
  - Fear of disease [Unknown]
  - Nasopharyngitis [Not Recovered/Not Resolved]
  - Illness [Unknown]
  - Infection [Unknown]
  - Ulcer [Unknown]
  - Migraine [Unknown]
  - Chest discomfort [Unknown]
  - Pyrexia [Recovered/Resolved]
  - Feeling abnormal [Recovered/Resolved]
  - Parosmia [Recovered/Resolved]
  - Decreased appetite [Recovered/Resolved]
  - Meniscus injury [Not Recovered/Not Resolved]
  - Fall [Unknown]
  - Illness [Recovered/Resolved]
  - Cough [Unknown]
  - Nasopharyngitis [Unknown]

NARRATIVE: CASE EVENT DATE: 20201124
